FAERS Safety Report 4879741-8 (Version None)
Quarter: 2006Q1

REPORT INFORMATION
  Report Type: 
  Country: None (occurrence: None)
  Receive Date: 20060111
  Receipt Date: 20051227
  Transmission Date: 20060701
  Serious: Yes (Hospitalization)
  Sender: FDA-Public Use
  Company Number: 144102USA

PATIENT
  Age: 43 Year
  Sex: Female

DRUGS (1)
  1. PIMOZIDE [Suspect]
     Indication: PSYCHOTIC DISORDER
     Dosage: 12 MILLIGRAM, ORAL
     Route: 048
     Dates: start: 19950630

REACTIONS (2)
  - EXTRAPYRAMIDAL DISORDER [None]
  - SLEEP DISORDER [None]
